FAERS Safety Report 13792611 (Version 1)
Quarter: 2017Q3

REPORT INFORMATION
  Report Type: Spontaneous
  Country: GB (occurrence: GB)
  Receive Date: 20170726
  Receipt Date: 20170726
  Transmission Date: 20171127
  Serious: Yes (Death, Hospitalization)
  Sender: FDA-Public Use
  Company Number: GB-ELI_LILLY_AND_COMPANY-GB201707008602

PATIENT
  Age: 55 Year
  Sex: Female
  Weight: 51.6 kg

DRUGS (1)
  1. TERIPARATIDE [Suspect]
     Active Substance: TERIPARATIDE
     Indication: OSTEOPOROSIS
     Dosage: 20 UG, UNKNOWN
     Route: 058
     Dates: start: 20160602

REACTIONS (2)
  - Enteropathy-associated T-cell lymphoma [Fatal]
  - Tumour perforation [Unknown]

NARRATIVE: CASE EVENT DATE: 20170301
